FAERS Safety Report 5048794-9 (Version None)
Quarter: 2006Q3

REPORT INFORMATION
  Report Type: 
  Country: None (occurrence: None)
  Receive Date: 20060705
  Receipt Date: 20060614
  Transmission Date: 20061208
  Serious: Yes (Hospitalization)
  Sender: FDA-Public Use
  Company Number: IL200606003412

PATIENT
  Sex: Female

DRUGS (1)
  1. GEMCITABINE HYDROCHLORIDE (GEMCITABINE HYDROCHLORIDE) [Suspect]
     Indication: OVARIAN EPITHELIAL CANCER
     Dosage: 1000 MG/M2, OTHER, INTRAVENOUS
     Route: 042

REACTIONS (1)
  - PNEUMONIA [None]
